FAERS Safety Report 10588222 (Version 1)
Quarter: 2014Q4

REPORT INFORMATION
  Report Type: Spontaneous
  Country: FI (occurrence: FI)
  Receive Date: 20141117
  Receipt Date: 20141117
  Transmission Date: 20150529
  Serious: Yes (Other)
  Sender: FDA-Public Use
  Company Number: FI-ABBVIE-14P-055-1308662-00

PATIENT
  Age: 81 Year
  Sex: Male

DRUGS (3)
  1. KLEXANE [Concomitant]
     Active Substance: ENOXAPARIN
     Dosage: 100 MG IN THE EVENING
     Dates: start: 201408
  2. PROCRIN [Suspect]
     Active Substance: LEUPROLIDE ACETATE
     Indication: PROSTATE CANCER
     Route: 065
  3. KLEXANE [Concomitant]
     Active Substance: ENOXAPARIN
     Indication: PRODUCT USED FOR UNKNOWN INDICATION
     Dosage: 60 MG IN THE MORNING AND 60 MG IN THE EVENING
     Dates: start: 20140617, end: 201408

REACTIONS (2)
  - Metastases to spine [Not Recovered/Not Resolved]
  - Injection site induration [Not Recovered/Not Resolved]

NARRATIVE: CASE EVENT DATE: 20141023
